FAERS Safety Report 21562013 (Version 4)
Quarter: 2023Q1

REPORT INFORMATION
  Report Type: Report from Study
  Country: US (occurrence: US)
  Receive Date: 20221107
  Receipt Date: 20230125
  Transmission Date: 20230418
  Serious: Yes (Hospitalization, Other)
  Sender: FDA-Public Use
  Company Number: US-ABBVIE-4189165

PATIENT
  Age: 31 Year
  Sex: Male
  Weight: 62.142 kg

DRUGS (3)
  1. IMBRUVICA [Suspect]
     Active Substance: IBRUTINIB
     Indication: Non-Hodgkin^s lymphoma
     Dosage: END DATE 2022, FIRST ADMIN DATE-23 SEP 2022
     Route: 048
     Dates: start: 20220923
  2. IMBRUVICA [Suspect]
     Active Substance: IBRUTINIB
     Indication: Non-Hodgkin^s lymphoma
     Dosage: FIRST DOSE DATE-2022
     Route: 048
  3. DESCOVY [Concomitant]
     Active Substance: EMTRICITABINE\TENOFOVIR ALAFENAMIDE FUMARATE
     Indication: HIV infection
     Route: 065

REACTIONS (8)
  - Wound infection [Not Recovered/Not Resolved]
  - Emotional disorder [Unknown]
  - Device issue [Unknown]
  - Transfusion [Unknown]
  - Hospitalisation [Unknown]
  - Off label use [Not Recovered/Not Resolved]
  - Platelet transfusion [Unknown]
  - Gait disturbance [Unknown]

NARRATIVE: CASE EVENT DATE: 20220101
